FAERS Safety Report 26059457 (Version 1)
Quarter: 2025Q4

REPORT INFORMATION
  Report Type: Spontaneous
  Country: EU (occurrence: EU)
  Receive Date: 20251118
  Receipt Date: 20251118
  Transmission Date: 20260118
  Serious: Yes (Other)
  Sender: AMGEN
  Company Number: EU-AMGEN-ITASP2025223777

PATIENT

DRUGS (2)
  1. ROMIPLOSTIM [Suspect]
     Active Substance: ROMIPLOSTIM
     Indication: Immune thrombocytopenia
     Dosage: UNK
     Route: 065
  2. FOSTAMATINIB [Suspect]
     Active Substance: FOSTAMATINIB
     Indication: Immune thrombocytopenia
     Route: 065

REACTIONS (7)
  - Neutropenia [Unknown]
  - Treatment failure [Unknown]
  - Venous thrombosis [Unknown]
  - Hypertransaminasaemia [Unknown]
  - Hypertension [Unknown]
  - Adverse event [Unknown]
  - Diarrhoea [Unknown]
